FAERS Safety Report 4503265-0 (Version None)
Quarter: 2004Q4

REPORT INFORMATION
  Report Type: 
  Country: None (occurrence: None)
  Receive Date: 20041112
  Receipt Date: 20041102
  Transmission Date: 20050328
  Serious: Yes (Hospitalization, Other)
  Sender: FDA-Public Use
  Company Number: 2004087504

PATIENT
  Age: 25 Year
  Sex: Female

DRUGS (1)
  1. PHENYTOIN [Suspect]
     Indication: GRAND MAL CONVULSION
     Dosage: 600 MG,

REACTIONS (16)
  - CEREBELLAR ATROPHY [None]
  - CEREBELLAR SYNDROME [None]
  - CEREBRAL VENTRICLE DILATATION [None]
  - CONFUSIONAL STATE [None]
  - DEPRESSED LEVEL OF CONSCIOUSNESS [None]
  - DIPLOPIA [None]
  - DRUG TOXICITY [None]
  - DYSSTASIA [None]
  - ELECTROCARDIOGRAM DELTA WAVES ABNORMAL [None]
  - ENCEPHALOPATHY [None]
  - INTENTION TREMOR [None]
  - MOVEMENT DISORDER [None]
  - NERVOUS SYSTEM DISORDER [None]
  - NYSTAGMUS [None]
  - OVERDOSE [None]
  - URINARY INCONTINENCE [None]
